FAERS Safety Report 7774715-1 (Version None)
Quarter: 2011Q3

REPORT INFORMATION
  Report Type: 
  Country: None (occurrence: None)
  Receive Date: 20110923
  Receipt Date: 20110915
  Transmission Date: 20111222
  Serious: Yes (Other)
  Sender: FDA-Public Use
  Company Number: JP-JNJFOC-20110702246

PATIENT
  Age: 61 Year
  Sex: Female

DRUGS (4)
  1. DOXORUBICIN HCL [Suspect]
     Indication: OVARIAN CANCER RECURRENT
     Dosage: CYCLE 1
     Route: 042
  2. DEXAMETHASONE [Concomitant]
     Indication: PROPHYLAXIS
     Route: 065
  3. PYRIDOXINE HYDROCHLORIDE [Concomitant]
     Indication: PROPHYLAXIS
     Route: 065
  4. DOXORUBICIN HCL [Suspect]
     Dosage: CYCLE 2
     Route: 042

REACTIONS (1)
  - PNEUMOCYSTIS JIROVECI PNEUMONIA [None]
